FAERS Safety Report 16928356 (Version 2)
Quarter: 2019Q4

REPORT INFORMATION
  Report Type: Spontaneous
  Country: IE (occurrence: IE)
  Receive Date: 20191017
  Receipt Date: 20191224
  Transmission Date: 20200122
  Serious: Yes (Death, Hospitalization)
  Sender: FDA-Public Use
  Company Number: IE-TEVA-2019-IE-1072716

PATIENT
  Age: 88 Year
  Sex: Male

DRUGS (3)
  1. ALLOPURINOL (GENERIC) [Suspect]
     Active Substance: ALLOPURINOL
     Indication: GOUT
     Dosage: APPROXIMATELY 2 WEEKS
     Route: 048
     Dates: start: 20190423
  2. COLCHICINE (G) [Concomitant]
     Indication: BLOOD URIC ACID INCREASED
     Dosage: 500 MICROGRAM EVERY 12 HOURS
     Dates: start: 20190423, end: 20190516
  3. ALLOPURINOL (GENERIC) [Suspect]
     Active Substance: ALLOPURINOL
     Indication: BLOOD URIC ACID INCREASED

REACTIONS (6)
  - Decreased appetite [Not Recovered/Not Resolved]
  - Oropharyngeal pain [Not Recovered/Not Resolved]
  - Blister [Not Recovered/Not Resolved]
  - Asthenia [Not Recovered/Not Resolved]
  - Stevens-Johnson syndrome [Fatal]
  - Mucosal atrophy [Not Recovered/Not Resolved]

NARRATIVE: CASE EVENT DATE: 201905
